FAERS Safety Report 6478046-1 (Version None)
Quarter: 2009Q4

REPORT INFORMATION
  Report Type: 
  Country: None (occurrence: None)
  Receive Date: 20091203
  Receipt Date: 20091203
  Transmission Date: 20100525
  Serious: Yes (Hospitalization)
  Sender: FDA-Public Use
  Company Number: None

PATIENT
  Sex: Male
  Weight: 88 kg

DRUGS (4)
  1. CISPLATIN [Suspect]
     Dosage: 154 MG
     Dates: end: 20091109
  2. ETOPOSIDE [Suspect]
     Dosage: 615 MG
     Dates: end: 20091111
  3. COMPAZINE [Concomitant]
  4. PENICILLIN VK [Concomitant]

REACTIONS (7)
  - ARTHRALGIA [None]
  - FEBRILE NEUTROPENIA [None]
  - HEADACHE [None]
  - INFLUENZA [None]
  - MYALGIA [None]
  - PYREXIA [None]
  - TOOTH ABSCESS [None]
